FAERS Safety Report 25965677 (Version 1)
Quarter: 2025Q4

REPORT INFORMATION
  Report Type: Spontaneous
  Country: US (occurrence: US)
  Receive Date: 20251027
  Receipt Date: 20251027
  Transmission Date: 20260118
  Serious: No
  Sender: ANI
  Company Number: US-ANIPHARMA-2025-US-043770

PATIENT
  Sex: Female

DRUGS (1)
  1. ARIMIDEX [Suspect]
     Active Substance: ANASTROZOLE
     Indication: Product used for unknown indication
     Route: 050

REACTIONS (2)
  - Gastrostomy [Unknown]
  - Off label use [Unknown]

NARRATIVE: CASE EVENT DATE: 20240901
